FAERS Safety Report 20910869 (Version 2)
Quarter: 2022Q3

REPORT INFORMATION
  Report Type: Spontaneous
  Country: DE (occurrence: DE)
  Receive Date: 20220603
  Receipt Date: 20220708
  Transmission Date: 20221027
  Serious: Yes (Other)
  Sender: FDA-Public Use
  Company Number: DE-BAYER-2021-154792

PATIENT
  Age: 30 Year
  Sex: Female
  Weight: 67 kg

DRUGS (1)
  1. KYLEENA [Suspect]
     Active Substance: LEVONORGESTREL
     Dosage: 17.5?G/DAY
     Route: 015
     Dates: start: 20181120, end: 20211219

REACTIONS (6)
  - Pregnancy with contraceptive device [Recovered/Resolved]
  - Haemorrhage in pregnancy [Recovered/Resolved]
  - Retroplacental haematoma [Recovered/Resolved]
  - Pain [None]
  - Complication of pregnancy [Recovered/Resolved]
  - Drug ineffective [None]

NARRATIVE: CASE EVENT DATE: 20210604
